FAERS Safety Report 4592689-1 (Version None)
Quarter: 2005Q1

REPORT INFORMATION
  Report Type: 
  Country: None (occurrence: None)
  Receive Date: 20050228
  Receipt Date: 20050111
  Transmission Date: 20050727
  Serious: Yes (Other)
  Sender: FDA-Public Use
  Company Number: PHEH2005US00774

PATIENT
  Age: 34 Year
  Sex: Female

DRUGS (6)
  1. DIOVAN [Suspect]
     Indication: HYPERTENSION
     Dosage: 160 MG, QD
     Route: 048
     Dates: start: 20050201
  2. LOTREL [Suspect]
     Indication: HYPERTENSION
     Dosage: UNK, UNK
     Dates: start: 20050107, end: 20050201
  3. PROTONIX [Concomitant]
  4. VICODIN ES [Concomitant]
  5. LOMOTIL [Concomitant]
  6. TIGAN [Concomitant]

REACTIONS (2)
  - DEPRESSION [None]
  - FATIGUE [None]
